FAERS Safety Report 10534333 (Version 1)
Quarter: 2014Q4

REPORT INFORMATION
  Report Type: Spontaneous
  Country: US (occurrence: None)
  Receive Date: 20141020
  Receipt Date: 20141020
  Transmission Date: 20150529
  Serious: Yes (Other)
  Sender: FDA-Public Use
  Company Number: 2014SUP00064

PATIENT
  Age: 16 Year
  Sex: Female
  Weight: 54.4 kg

DRUGS (4)
  1. VITAMIN B12 [Concomitant]
     Active Substance: CYANOCOBALAMIN
  2. OXTELLAR XR [Suspect]
     Active Substance: OXCARBAZEPINE
     Indication: EPILEPSY
     Route: 048
     Dates: start: 201409
  3. TOPAMAX [Concomitant]
     Active Substance: TOPIRAMATE
  4. OXTELLAR XR [Suspect]
     Active Substance: OXCARBAZEPINE
     Indication: EPILEPSY
     Route: 048
     Dates: start: 201409

REACTIONS (4)
  - Visual impairment [None]
  - Asthenia [None]
  - Tremor [None]
  - Fall [None]

NARRATIVE: CASE EVENT DATE: 201409
